FAERS Safety Report 5710673-9 (Version None)
Quarter: 2008Q2

REPORT INFORMATION
  Report Type: 
  Country: None (occurrence: None)
  Receive Date: 20080419
  Receipt Date: 20080414
  Transmission Date: 20081010
  Serious: Yes (Hospitalization)
  Sender: FDA-Public Use
  Company Number: US-BRISTOL-MYERS SQUIBB COMPANY-14143408

PATIENT
  Age: 58 Year
  Sex: Male
  Weight: 91 kg

DRUGS (3)
  1. ERBITUX [Suspect]
     Indication: SQUAMOUS CELL CARCINOMA
     Dosage: COURSE START DATE : 24-MAR-2008
     Route: 042
     Dates: start: 20080331, end: 20080331
  2. CISPLATIN [Suspect]
     Indication: SQUAMOUS CELL CARCINOMA
     Dosage: COURSE START DATE : 24-MAR-2008
     Route: 042
     Dates: start: 20080331, end: 20080331
  3. RADIATION THERAPY [Suspect]
     Indication: SQUAMOUS CELL CARCINOMA
     Dosage: 1 DOSAGE FORM=6 FX;COURSE START DATE : 24-MAR-2008
     Dates: start: 20080404, end: 20080404

REACTIONS (4)
  - HYPONATRAEMIA [None]
  - LEFT VENTRICULAR DYSFUNCTION [None]
  - MYOCARDIAL INFARCTION [None]
  - TROPONIN T INCREASED [None]
